FAERS Safety Report 23127416 (Version 2)
Quarter: 2024Q1

REPORT INFORMATION
  Report Type: Spontaneous
  Country: US (occurrence: US)
  Receive Date: 20231031
  Receipt Date: 20240119
  Transmission Date: 20240409
  Serious: No
  Sender: FDA-Public Use
  Company Number: US-ABBVIE-5474186

PATIENT
  Weight: 74 kg

DRUGS (3)
  1. SKYRIZI [Suspect]
     Active Substance: RISANKIZUMAB-RZAA
     Indication: Product used for unknown indication
     Dosage: 150 MG,?FREQUENCY TEXT: AGAIN IN 4 WEEKS, LAST ADMIN DATE: 2023
     Route: 058
     Dates: start: 20231023
  2. SKYRIZI [Suspect]
     Active Substance: RISANKIZUMAB-RZAA
     Dosage: FREQUENCY TEXT: AGAIN IN 4 WEEKS
     Route: 058
     Dates: start: 20231120
  3. SKYRIZI [Suspect]
     Active Substance: RISANKIZUMAB-RZAA
     Dosage: LAST ADMIN DATE: 2023
     Route: 058
     Dates: start: 2023

REACTIONS (8)
  - Oral discomfort [Unknown]
  - Swollen tongue [Recovering/Resolving]
  - Hypoaesthesia [Unknown]
  - Hypersensitivity [Unknown]
  - Paraesthesia oral [Unknown]
  - Headache [Unknown]
  - Paraesthesia [Unknown]
  - Lip swelling [Recovering/Resolving]

NARRATIVE: CASE EVENT DATE: 20230101
